FAERS Safety Report 8897642 (Version 1)
Quarter: 2012Q4

REPORT INFORMATION
  Report Type: 
  Country: US (occurrence: US)
  Receive Date: 20121108
  Receipt Date: 20121108
  Transmission Date: 20130627
  Serious: No
  Sender: FDA-Public Use
  Company Number: US-AMGEN-USASP2012028630

PATIENT
  Sex: Male
  Weight: 90.7 kg

DRUGS (9)
  1. ENBREL [Suspect]
     Indication: PRODUCT USED FOR UNKNOWN INDICATION
     Dosage: 50 mg, qwk
     Route: 058
  2. LOPRESSOR [Concomitant]
     Dosage: 50 mg, UNK
  3. METHOTREXATE [Concomitant]
     Dosage: 2.5 mg, UNK
  4. PREDNISONE [Concomitant]
     Dosage: 5 mg, UNK
  5. COUMADIN                           /00014802/ [Concomitant]
     Dosage: 1 mg, UNK
  6. FOLIC ACID [Concomitant]
     Dosage: 1 mg, UNK
  7. VITAMIN C                          /00008001/ [Concomitant]
     Dosage: 1000 mg, UNK
  8. ASPIRIN LOW [Concomitant]
     Dosage: 81 mg, UNK
  9. VITAMIN D /00107901/ [Concomitant]
     Dosage: 1000 unit, UNK

REACTIONS (1)
  - Influenza [Unknown]
